FAERS Safety Report 5159448-2 (Version None)
Quarter: 2006Q4

REPORT INFORMATION
  Report Type: 
  Country: None (occurrence: None)
  Receive Date: 20061122
  Receipt Date: 20061122
  Transmission Date: 20070319
  Serious: Yes (Life-Threatening)
  Sender: FDA-Public Use
  Company Number: None

PATIENT
  Age: 71 Year
  Sex: Female
  Weight: 72.5755 kg

DRUGS (1)
  1. PROAIR HFA [Suspect]
     Indication: ASTHMA
     Dosage: 1 INHALED DOSE   2 TIMES DAILY
     Route: 055

REACTIONS (4)
  - ASTHMA [None]
  - CHEST PAIN [None]
  - MUSCLE TIGHTNESS [None]
  - REACTION TO DRUG EXCIPIENTS [None]
